FAERS Safety Report 6611860-8 (Version None)
Quarter: 2010Q1

REPORT INFORMATION
  Report Type: 
  Country: None (occurrence: None)
  Receive Date: 20100303
  Receipt Date: 20100222
  Transmission Date: 20100710
  Serious: Yes (Other)
  Sender: FDA-Public Use
  Company Number: GB-AMGEN-QUU394146

PATIENT
  Sex: Female
  Weight: 101.6 kg

DRUGS (9)
  1. ARANESP [Suspect]
     Indication: RENAL FAILURE CHRONIC
     Route: 058
     Dates: start: 20100114
  2. ALFACALCIDOL [Concomitant]
     Route: 048
  3. FUROSEMIDE [Concomitant]
     Route: 048
  4. MIXTARD HUMAN 70/30 [Concomitant]
     Route: 058
  5. LOSARTAN POTASSIUM [Concomitant]
     Route: 048
  6. FLUTICASONE [Concomitant]
     Route: 055
  7. NIFEDIPINE [Concomitant]
     Route: 048
  8. ASPIRIN [Concomitant]
     Route: 048
  9. ROSUVASTATIN [Concomitant]
     Route: 048

REACTIONS (1)
  - HYPOGLYCAEMIA [None]
